FAERS Safety Report 8948513 (Version 2)
Quarter: 2013Q1

REPORT INFORMATION
  Report Type: Report from Study
  Country: CL (occurrence: CL)
  Receive Date: 20121206
  Receipt Date: 20130108
  Transmission Date: 20140127
  Serious: Yes (Other)
  Sender: FDA-Public Use
  Company Number: PHHY2012CL110396

PATIENT
  Age: 29 Year
  Sex: Male

DRUGS (3)
  1. LEPONEX [Suspect]
     Indication: SCHIZOPHRENIA
     Dosage: 500 MG, QD
     Dates: start: 20111115
  2. LEPONEX [Suspect]
     Dosage: 200 MG, UNK
  3. LEPONEX [Suspect]
     Dosage: 500 MG, UNK

REACTIONS (5)
  - Aphagia [Recovered/Resolved]
  - Panic disorder [Recovered/Resolved]
  - Depression [Recovered/Resolved]
  - Dysphagia [Recovered/Resolved]
  - Anxiety [Unknown]
